FAERS Safety Report 18103478 (Version 1)
Quarter: 2020Q3

REPORT INFORMATION
  Report Type: Spontaneous
  Country: US (occurrence: US)
  Receive Date: 20200731
  Receipt Date: 20200731
  Transmission Date: 20201103
  Serious: Yes (Disabling)
  Sender: FDA-Public Use
  Company Number: None

PATIENT
  Age: 73 Year
  Sex: Female
  Weight: 65.25 kg

DRUGS (8)
  1. LOSARTAN. [Concomitant]
     Active Substance: LOSARTAN
  2. GLIMEPERIDE [Concomitant]
     Active Substance: GLIMEPIRIDE
  3. OMEGA 3 [Concomitant]
     Active Substance: OMEGA-3 FATTY ACIDS
  4. VITAMIN C [Concomitant]
     Active Substance: ASCORBIC ACID
  5. ASPERCREME WITH LIDOCAINE [Suspect]
     Active Substance: LIDOCAINE
     Indication: BACK PAIN
     Dosage: ?          QUANTITY:1 PATCH(ES);?
     Route: 062
     Dates: start: 20200725, end: 20200729
  6. BASALGAR [Concomitant]
  7. TRAZODONE [Concomitant]
     Active Substance: TRAZODONE HYDROCHLORIDE
  8. MULTIPLE VITAMIN [Concomitant]
     Active Substance: VITAMINS

REACTIONS (1)
  - Application site pain [None]

NARRATIVE: CASE EVENT DATE: 20200725
